FAERS Safety Report 21933865 (Version 2)
Quarter: 2023Q4

REPORT INFORMATION
  Report Type: Spontaneous
  Country: FR (occurrence: FR)
  Receive Date: 20230201
  Receipt Date: 20231016
  Transmission Date: 20240110
  Serious: Yes (Hospitalization)
  Sender: FDA-Public Use
  Company Number: FR-AFSSAPS-MP2023000053

PATIENT
  Age: 87 Year
  Sex: Female
  Weight: 51.8 kg

DRUGS (4)
  1. VENLAFAXINE [Suspect]
     Active Substance: VENLAFAXINE HYDROCHLORIDE
     Indication: Intentional overdose
     Dosage: 20 TABLETS OF VENLAFAXINE 75MG PART OF CHRONIC TREATMENTS AT THE RATE OF ONE 75MG CAPSULE IN 1 TABLE
     Route: 048
     Dates: start: 20220801, end: 20220801
  2. HYDROXYZINE [Suspect]
     Active Substance: HYDROXYZINE HYDROCHLORIDE
     Indication: Intentional overdose
     Dosage: 11 TABLETS OF 25MG OF HYDROXYZINE THIS IS A CHRONIC TREATMENT AT THE RATE OF 0.5 TABLETS IN THE MORN
     Route: 048
     Dates: start: 20220801, end: 20220801
  3. PYRIDOSTIGMINE (BROMURE DE) [Concomitant]
     Indication: Muscular weakness
     Dosage: 60 MILLIGRAM, 1 CP AT 8 A.M., 1 CP AT 12 P.M., 1 CP AT 4 P.M. 1 CP AT 8 P.M.
     Route: 048
  4. QUETIAPINE [Concomitant]
     Active Substance: QUETIAPINE
     Indication: Depression
     Dosage: 50 MILLIGRAM, IN THE EVENING
     Route: 048

REACTIONS (2)
  - Toxicity to various agents [Recovered/Resolved]
  - Tonic clonic movements [Recovered/Resolved]

NARRATIVE: CASE EVENT DATE: 20220801
